FAERS Safety Report 4761096-0 (Version None)
Quarter: 2005Q3

REPORT INFORMATION
  Report Type: 
  Country: None (occurrence: None)
  Receive Date: 20050905
  Receipt Date: 20050822
  Transmission Date: 20060218
  Serious: Yes (Other)
  Sender: FDA-Public Use
  Company Number: GB-RB-1974-2005

PATIENT
  Age: 54 Year
  Sex: Male

DRUGS (4)
  1. BUPRENORPHINE HCL [Suspect]
     Indication: DRUG DEPENDENCE
     Route: 065
  2. BENDROFLUAZIDE [Concomitant]
     Indication: DRUG USE FOR UNKNOWN INDICATION
     Route: 065
  3. OMEPRAZOLE [Concomitant]
     Indication: DRUG USE FOR UNKNOWN INDICATION
     Dosage: UNKNOWN
  4. MIRTAZAPINE [Concomitant]
     Dosage: 4-5 MG
     Route: 065

REACTIONS (4)
  - ARTHRALGIA [None]
  - BACK PAIN [None]
  - NECK PAIN [None]
  - PAIN IN EXTREMITY [None]
